FAERS Safety Report 6632971-7 (Version None)
Quarter: 2010Q1

REPORT INFORMATION
  Report Type: 
  Country: None (occurrence: None)
  Receive Date: 20100312
  Receipt Date: 20090421
  Transmission Date: 20100710
  Serious: No
  Sender: FDA-Public Use
  Company Number: US-ABBOTT-09P-163-0569526-00

PATIENT
  Sex: Male
  Weight: 68.1 kg

DRUGS (2)
  1. ERYTHROMYCIN ETHYLSUCCINATE [Suspect]
     Indication: MOUTH CYST
     Dosage: 200 MG/5 ML GRANULES
     Route: 048
     Dates: start: 20090410, end: 20090420
  2. ALTACE [Concomitant]
     Indication: HYPERTENSION

REACTIONS (1)
  - RASH [None]
